FAERS Safety Report 7247437-3 (Version None)
Quarter: 2011Q1

REPORT INFORMATION
  Report Type: 
  Country: None (occurrence: None)
  Receive Date: 20110127
  Receipt Date: 20110124
  Transmission Date: 20110831
  Serious: Yes (Death, Other)
  Sender: FDA-Public Use
  Company Number: PHFR2011GB00680

PATIENT
  Sex: Female

DRUGS (3)
  1. CLOZARIL [Suspect]
     Indication: SCHIZOPHRENIA
     Dosage: UNK MG, UNK
     Route: 048
     Dates: start: 20031003
  2. RAMIPRIL [Concomitant]
     Dosage: 10 MG
     Route: 048
  3. SIMVASTATIN [Concomitant]
     Dosage: 40 MG
     Route: 048

REACTIONS (6)
  - ACIDOSIS [None]
  - INTESTINAL ISCHAEMIA [None]
  - RENAL IMPAIRMENT [None]
  - MYALGIA [None]
  - BODY TEMPERATURE INCREASED [None]
  - WHITE BLOOD CELL COUNT INCREASED [None]
